FAERS Safety Report 18996139 (Version 1)
Quarter: 2021Q1

REPORT INFORMATION
  Report Type: Spontaneous
  Country: US (occurrence: US)
  Receive Date: 20210310
  Receipt Date: 20210310
  Transmission Date: 20210420
  Serious: Yes (Hospitalization)
  Sender: FDA-Public Use
  Company Number: None

PATIENT
  Age: 76 Year
  Sex: Male
  Weight: 79.6 kg

DRUGS (10)
  1. FINASTERIDE 10 MG DAILY [Concomitant]
  2. AZITHROMYCIN 250 MG DAILY [Concomitant]
  3. DONEPEZIL 10 MG DAILY [Concomitant]
  4. VITAMIN D3 2000 UNITS DAILY [Concomitant]
  5. DEXAMETHASONE 6 MG DAILY [Concomitant]
  6. RIVAROXABAN 10 MG DAILY [Concomitant]
  7. BAMLANIVIMAB. [Suspect]
     Active Substance: BAMLANIVIMAB
     Indication: COVID-19
     Route: 042
     Dates: start: 20210305, end: 20210305
  8. LISINOPRIL 10 MG DAILY [Concomitant]
  9. MULTIVITAMIN ONCE DAILY [Concomitant]
  10. TAMSULOSIN 0.4 MG DAILY [Concomitant]

REACTIONS (2)
  - Rhabdomyolysis [None]
  - Acute kidney injury [None]

NARRATIVE: CASE EVENT DATE: 20210309
